FAERS Safety Report 4375728-2 (Version None)
Quarter: 2004Q2

REPORT INFORMATION
  Report Type: 
  Country: None (occurrence: None)
  Receive Date: 20040608
  Receipt Date: 20030131
  Transmission Date: 20050107
  Serious: Yes (Other)
  Sender: FDA-Public Use
  Company Number: 200310363BCC

PATIENT
  Age: 83 Year
  Sex: Male
  Weight: 68.0396 kg

DRUGS (3)
  1. ALEVE [Suspect]
     Indication: PAIN
     Dosage: 440 MG, QD, ORAL
     Route: 048
     Dates: start: 20030118
  2. UNKNOWN MEDICATION FOR A KIDNEY INFECTION [Concomitant]
  3. HYTRIN [Concomitant]

REACTIONS (1)
  - BLOOD URINE [None]
